FAERS Safety Report 8915078 (Version 1)
Quarter: 2012Q4

REPORT INFORMATION
  Report Type: Report from Study
  Country: DK (occurrence: DE)
  Receive Date: 20121119
  Receipt Date: 20121119
  Transmission Date: 20130627
  Serious: Yes (Hospitalization)
  Sender: FDA-Public Use
  Company Number: DE-FRI-1000040424

PATIENT
  Age: 21 Year
  Sex: Female

DRUGS (7)
  1. CITALOPRAM [Suspect]
     Dosage: 10 mg
     Route: 048
     Dates: start: 20120817, end: 20120819
  2. SEROQUEL PROLONG [Concomitant]
     Dosage: unknown
     Route: 048
     Dates: start: 2011
  3. SEROQUEL PROLONG [Concomitant]
     Dosage: 400 mg
     Route: 048
     Dates: start: 20120101, end: 20120826
  4. SEROQUEL PROLONG [Concomitant]
     Dosage: 600 mg
     Route: 048
     Dates: start: 20120827, end: 20120902
  5. SEROQUEL PROLONG [Concomitant]
     Dosage: 700 mg
     Route: 048
     Dates: start: 20120903, end: 20120905
  6. SEROQUEL PROLONG [Concomitant]
     Dosage: 800 mg
     Route: 048
     Dates: start: 20120906
  7. LEVOTHYROXINE [Concomitant]
     Dosage: 137 micrograms
     Route: 048

REACTIONS (6)
  - Hallucination [Recovering/Resolving]
  - Delusion [Recovering/Resolving]
  - Bradyphrenia [Recovering/Resolving]
  - Restlessness [Recovering/Resolving]
  - Stupor [Recovering/Resolving]
  - Confusional state [Recovering/Resolving]
